FAERS Safety Report 23911180 (Version 1)
Quarter: 2024Q2

REPORT INFORMATION
  Report Type: Spontaneous
  Country: CH (occurrence: CH)
  Receive Date: 20240528
  Receipt Date: 20240528
  Transmission Date: 20240717
  Serious: Yes (Hospitalization, Other)
  Sender: FDA-Public Use
  Company Number: CH-EMA-20130107-slalp-142021079

PATIENT
  Age: 19 Year
  Sex: Male

DRUGS (11)
  1. KETAMINE HYDROCHLORIDE [Suspect]
     Active Substance: KETAMINE HYDROCHLORIDE
     Indication: Ill-defined disorder
     Dosage: UNK
     Route: 042
     Dates: start: 20040831
  2. TARGOCID [Suspect]
     Active Substance: TEICOPLANIN
     Indication: Unevaluable event
     Dosage: 200 MG, 1X/DAY
     Dates: start: 20040912
  3. MIDAZOLAM HYDROCHLORIDE [Suspect]
     Active Substance: MIDAZOLAM HYDROCHLORIDE
     Indication: Ill-defined disorder
     Dosage: 20 MG, 1X/DAY
     Route: 042
     Dates: start: 20040831
  4. CIPROFLOXACIN HYDROCHLORIDE [Suspect]
     Active Substance: CIPROFLOXACIN HYDROCHLORIDE
     Indication: Pneumonia
     Dosage: UNK
     Route: 042
     Dates: start: 20040910, end: 20040921
  5. AMOXICILLIN\CLAVULANATE POTASSIUM [Suspect]
     Active Substance: AMOXICILLIN\CLAVULANATE POTASSIUM
     Indication: Ill-defined disorder
     Dosage: UNK
     Route: 042
     Dates: start: 20040906, end: 20040913
  6. GENTAMICIN SULFATE [Suspect]
     Active Substance: GENTAMICIN SULFATE
     Indication: Ill-defined disorder
     Dosage: UNK
     Route: 042
     Dates: start: 20040906, end: 20040913
  7. MEROPENEM [Suspect]
     Active Substance: MEROPENEM
     Indication: Ill-defined disorder
     Dosage: UNK
     Route: 042
     Dates: start: 20040913
  8. TEICOPLANIN [Concomitant]
     Active Substance: TEICOPLANIN
     Dosage: 200 MG, 1X/DAY
     Route: 042
     Dates: start: 20040831
  9. ACETAMINOPHEN [Concomitant]
     Active Substance: ACETAMINOPHEN
     Indication: Pain
     Dosage: 200 MG
     Route: 048
     Dates: start: 20040831
  10. HEPARIN [Concomitant]
     Active Substance: HEPARIN SODIUM
     Indication: Ill-defined disorder
     Dosage: 4800 MG
     Route: 042
     Dates: start: 20040831
  11. CEFEPIME HYDROCHLORIDE [Concomitant]
     Active Substance: CEFEPIME HYDROCHLORIDE
     Dosage: UNK
     Route: 042
     Dates: start: 20040905, end: 20040906

REACTIONS (5)
  - Sepsis [Not Recovered/Not Resolved]
  - Pneumonia pseudomonal [Not Recovered/Not Resolved]
  - Rhabdomyolysis [Not Recovered/Not Resolved]
  - Pyrexia [Recovering/Resolving]
  - Staphylococcus test positive [Not Recovered/Not Resolved]

NARRATIVE: CASE EVENT DATE: 20040904
